FAERS Safety Report 6265902-2 (Version None)
Quarter: 2009Q3

REPORT INFORMATION
  Report Type: 
  Country: None (occurrence: None)
  Receive Date: 20090713
  Receipt Date: 20090702
  Transmission Date: 20100115
  Serious: Yes (Other)
  Sender: FDA-Public Use
  Company Number: PHHY2009BR27045

PATIENT
  Sex: Female
  Weight: 99 kg

DRUGS (5)
  1. EXFORGE [Suspect]
     Indication: HYPERTENSION
     Dosage: 1 TABLET (160/5 MG) DAILY
     Route: 048
  2. LEVOTHYROXINE SODIUM [Concomitant]
     Indication: HYPOTHYROIDISM
     Dosage: 1 TABLET (175 MCG) FASTING
     Route: 048
     Dates: start: 19980101
  3. TANDRILAX [Concomitant]
     Indication: ARTHRALGIA
     Dosage: 1 TABLET WHEN NEEDED
     Route: 048
  4. HYDROCHLOROTHIAZIDE [Concomitant]
     Indication: POLYURIA
     Dosage: 1 TABLET (50 MG)/DAY
  5. SIMVASTATIN [Concomitant]
     Indication: BLOOD URIC ACID ABNORMAL
     Dosage: 1 TBALET (20 MG) PER DAY

REACTIONS (19)
  - ANXIETY [None]
  - BACK PAIN [None]
  - BLOOD PRESSURE DECREASED [None]
  - CARDIOMEGALY [None]
  - CHEST DISCOMFORT [None]
  - DIZZINESS [None]
  - DYSPHONIA [None]
  - DYSPNOEA [None]
  - DYSURIA [None]
  - EXOSTOSIS [None]
  - FALL [None]
  - FATIGUE [None]
  - FEELING ABNORMAL [None]
  - HYPOTHYROIDISM [None]
  - JOINT DISLOCATION [None]
  - MASS [None]
  - OEDEMA PERIPHERAL [None]
  - PAIN [None]
  - PYREXIA [None]
